FAERS Safety Report 7099649-X (Version None)
Quarter: 2010Q4

REPORT INFORMATION
  Report Type: 
  Country: None (occurrence: None)
  Receive Date: 20101112
  Receipt Date: 20101108
  Transmission Date: 20110411
  Serious: Yes (Hospitalization, Other)
  Sender: FDA-Public Use
  Company Number: IE-AMGEN-UK366217

PATIENT

DRUGS (18)
  1. ARANESP [Suspect]
     Indication: ANAEMIA
     Dosage: 100 UNK, QWK
     Route: 058
     Dates: start: 20050518, end: 20050714
  2. ARANESP [Suspect]
     Dosage: 150 UNK, QWK
     Route: 058
     Dates: start: 20050514, end: 20061019
  3. ARANESP [Suspect]
     Dosage: 200 UNK, QWK
     Route: 058
     Dates: start: 20061009, end: 20070502
  4. ARANESP [Suspect]
     Dosage: 150 UNK, QWK
     Route: 058
     Dates: start: 20070502, end: 20070919
  5. ARANESP [Suspect]
     Dosage: 200 UNK, QWK
     Route: 058
     Dates: start: 20070919
  6. MIMPARA [Concomitant]
     Dosage: 180 MG, QD
     Route: 065
  7. LANTHANUM CARBONATE [Concomitant]
     Dosage: 1 G, UNK
     Route: 065
  8. CALCIUM CARBONATE [Concomitant]
     Dosage: 500 MG, UNK
     Route: 065
  9. SEVELAMER [Concomitant]
     Dosage: 800 MG, UNK
     Route: 065
  10. ALFACALCIDOL [Concomitant]
     Dosage: 1 A?G, QD
     Route: 065
  11. MINOXIDIL [Concomitant]
     Dosage: 10 MG, QD
     Route: 065
  12. NIFEDIPINE [Concomitant]
     Dosage: 40 MG, BID
     Route: 065
  13. DOXAZOSIN MESYLATE [Concomitant]
     Dosage: 8 MG, BID
     Route: 065
  14. METOPROLOL [Concomitant]
     Dosage: 100 MG, BID
     Route: 065
  15. ORLISTAT [Concomitant]
     Dosage: 120 MG, TID
     Route: 065
  16. FOLIC ACID [Concomitant]
     Dosage: 5 MG, QD
     Route: 065
  17. FERROUS FUMARATE [Concomitant]
     Dosage: UNK UNK, QD
     Route: 065
  18. BEMINAL WITH C FORTIS [Concomitant]
     Dosage: UNK UNK, QD
     Route: 065

REACTIONS (8)
  - ANAEMIA OF CHRONIC DISEASE [None]
  - BLOOD PARATHYROID HORMONE INCREASED [None]
  - HYPERTENSION [None]
  - HYPOTENSION [None]
  - LETHARGY [None]
  - NAUSEA [None]
  - THERAPEUTIC RESPONSE DECREASED [None]
  - VOMITING [None]
